FAERS Safety Report 5286449-6 (Version None)
Quarter: 2007Q2

REPORT INFORMATION
  Report Type: 
  Country: None (occurrence: None)
  Receive Date: 20070404
  Receipt Date: 20070327
  Transmission Date: 20071010
  Serious: Yes (Hospitalization)
  Sender: FDA-Public Use
  Company Number: CA-JNJFOC-20070302171

PATIENT
  Sex: Female
  Weight: 51.5 kg

DRUGS (24)
  1. DOXORUBICIN HYDROCHLORIDE [Suspect]
     Indication: DRUG USE FOR UNKNOWN INDICATION
     Dosage: 78MG TOTAL DOSE ADMINISTERED FROM 14.30 -16.20 ON 16-FEB-2007
     Route: 042
  2. TRABECTEDIN [Suspect]
     Indication: DRUG USE FOR UNKNOWN INDICATION
  3. ETIDRONATE DISODIUM [Concomitant]
     Indication: OSTEOPOROSIS
     Route: 048
  4. CALCIUM WITH VITAMIN D [Concomitant]
     Indication: OSTEOPOROSIS
     Route: 048
  5. ANTIPHLOGISTINE [Concomitant]
     Indication: ARTHRALGIA
     Route: 061
  6. TIGER BALM [Concomitant]
     Indication: ARTHRALGIA
     Route: 061
  7. ALGINIC ACID [Concomitant]
     Route: 048
  8. METOCLOPRAMIDE [Concomitant]
     Indication: DYSPEPSIA
     Route: 048
  9. METOCLOPRAMIDE [Concomitant]
     Indication: NAUSEA
     Route: 048
  10. DEXAMETHASONE [Concomitant]
     Indication: PROPHYLAXIS OF NAUSEA AND VOMITING
     Route: 048
  11. ONDANSETRON [Concomitant]
     Indication: VOMITING
     Route: 042
  12. ONDANSETRON [Concomitant]
     Indication: NAUSEA
     Route: 042
  13. ACETAMINOPHEN [Concomitant]
     Indication: PROPHYLACTIC CHEMOTHERAPY
     Dosage: DAY 1 OF EACH CYCLE
     Route: 048
  14. ACETAMINOPHEN [Concomitant]
     Indication: ARTHRALGIA
     Route: 048
  15. RANITIDINE [Concomitant]
     Indication: DYSPEPSIA
     Route: 048
  16. SENNA [Concomitant]
     Indication: CONSTIPATION PROPHYLAXIS
     Dosage: 1-2 TABLETS PRN
     Route: 048
  17. METOCLOPRAMIDE [Concomitant]
     Indication: VOMITING
     Route: 042
  18. METOCLOPRAMIDE [Concomitant]
     Route: 042
  19. DEXAMETHASONE [Concomitant]
     Route: 042
  20. DEXAMETHASONE [Concomitant]
     Indication: PROPHYLACTIC CHEMOTHERAPY
     Route: 042
  21. DEXAMETHASONE [Concomitant]
     Indication: NAUSEA
     Route: 042
  22. DEXAMETHASONE [Concomitant]
     Indication: VOMITING
     Dosage: DAY 1 OF EACH CYCLE
     Route: 042
  23. ONDANSETRON [Concomitant]
     Indication: DYSPEPSIA
     Route: 048
  24. ONDANSETRON [Concomitant]
     Indication: PROPHYLACTIC CHEMOTHERAPY
     Route: 048

REACTIONS (7)
  - ABDOMINAL PAIN [None]
  - DEHYDRATION [None]
  - HALLUCINATION, VISUAL [None]
  - MALNUTRITION [None]
  - NAUSEA [None]
  - OESOPHAGEAL CANDIDIASIS [None]
  - VOMITING [None]
